FAERS Safety Report 5616610-X (Version None)
Quarter: 2008Q1

REPORT INFORMATION
  Report Type: 
  Country: None (occurrence: None)
  Receive Date: 20080207
  Receipt Date: 20071120
  Transmission Date: 20080703
  Serious: No
  Sender: FDA-Public Use
  Company Number: A0685311A

PATIENT
  Age: 16 Year
  Sex: Male

DRUGS (2)
  1. PAXIL CR [Suspect]
     Indication: DRUG USE FOR UNKNOWN INDICATION
     Dosage: 25MG PER DAY
     Route: 048
     Dates: start: 20070621
  2. NO CONCURRENT MEDICATION [Concomitant]

REACTIONS (6)
  - ANXIETY DISORDER [None]
  - MUSCLE FATIGUE [None]
  - MUSCLE INJURY [None]
  - MUSCLE STRAIN [None]
  - MUSCLE TIGHTNESS [None]
  - MYALGIA [None]
